FAERS Safety Report 5192930-0 (Version None)
Quarter: 2006Q4

REPORT INFORMATION
  Report Type: 
  Country: None (occurrence: None)
  Receive Date: 20061228
  Receipt Date: 20060227
  Transmission Date: 20070319
  Serious: Yes (Other)
  Sender: FDA-Public Use
  Company Number: US-GLAXOSMITHKLINE-A0595303A

PATIENT
  Age: 62 Year
  Sex: Female

DRUGS (7)
  1. FLONASE [Suspect]
     Indication: DRUG USE FOR UNKNOWN INDICATION
     Dosage: 2PUFF PER DAY
     Route: 045
     Dates: start: 20051015
  2. OMEPRAZOLE [Concomitant]
  3. DITROPAN [Concomitant]
  4. AVALIDE [Concomitant]
  5. CLIMARA [Concomitant]
  6. TOPROL-XL [Concomitant]
  7. CYMBALTA [Concomitant]

REACTIONS (1)
  - CATARACT [None]
